FAERS Safety Report 25595447 (Version 2)
Quarter: 2025Q3

REPORT INFORMATION
  Report Type: Spontaneous
  Country: US (occurrence: US)
  Receive Date: 20250723
  Receipt Date: 20250813
  Transmission Date: 20251021
  Serious: No
  Sender: ROCHE
  Company Number: US-ROCHE-10000342108

PATIENT
  Age: 39 Year
  Sex: Female
  Weight: 106.59 kg

DRUGS (3)
  1. OCREVUS [Suspect]
     Active Substance: OCRELIZUMAB
     Indication: Relapsing-remitting multiple sclerosis
     Route: 042
     Dates: start: 20191211
  2. SOLU-MEDROL [Concomitant]
     Active Substance: METHYLPREDNISOLONE SODIUM SUCCINATE
     Route: 042
  3. TYLENOL [Concomitant]
     Active Substance: ACETAMINOPHEN
     Route: 048

REACTIONS (6)
  - Oral pain [Not Recovered/Not Resolved]
  - Mouth swelling [Not Recovered/Not Resolved]
  - Stomatitis [Unknown]
  - Gingival recession [Not Recovered/Not Resolved]
  - Bone loss [Not Recovered/Not Resolved]
  - Periodontal disease [Unknown]

NARRATIVE: CASE EVENT DATE: 20230101
